FAERS Safety Report 20732531 (Version 1)
Quarter: 2022Q2

REPORT INFORMATION
  Report Type: Spontaneous
  Country: US (occurrence: US)
  Receive Date: 20220420
  Receipt Date: 20220420
  Transmission Date: 20220721
  Serious: No
  Sender: FDA-Public Use
  Company Number: US-BEH-2022144411

PATIENT
  Age: 59 Year
  Sex: Female

DRUGS (2)
  1. PRIVIGEN [Suspect]
     Active Substance: HUMAN IMMUNOGLOBULIN G
     Dosage: UNK
     Route: 065
     Dates: start: 202112
  2. SODIUM CHLORIDE [Concomitant]
     Active Substance: SODIUM CHLORIDE

REACTIONS (5)
  - Vasodilatation [Not Recovered/Not Resolved]
  - Varicose vein [Not Recovered/Not Resolved]
  - Hypervolaemia [Unknown]
  - No adverse event [Unknown]
  - Incorrect dose administered [Unknown]
